FAERS Safety Report 4663895-2 (Version None)
Quarter: 2005Q2

REPORT INFORMATION
  Report Type: 
  Country: None (occurrence: None)
  Receive Date: 20050516
  Receipt Date: 20050510
  Transmission Date: 20051028
  Serious: Yes (Death, Other)
  Sender: FDA-Public Use
  Company Number: 2005-02-1521

PATIENT
  Age: 47 Year
  Sex: Male

DRUGS (6)
  1. REBETOL [Suspect]
     Indication: HEPATITIS C
     Dosage: 800 MG  QD ORAL
     Route: 048
     Dates: start: 20000201, end: 20000301
  2. INTRON A [Suspect]
     Indication: HEPATITIS C
     Dosage: 3 MU QD
     Dates: start: 20000201, end: 20000301
  3. FLORINAL WITH CODEINE [Concomitant]
  4. FOLIC ACID [Concomitant]
  5. MULTI-VITAMINS [Concomitant]
  6. HERBAL MEDICATION NOS [Concomitant]

REACTIONS (5)
  - ASTHENIA [None]
  - COMPLETED SUICIDE [None]
  - MALAISE [None]
  - MIGRAINE [None]
  - TREATMENT NONCOMPLIANCE [None]
